FAERS Safety Report 12964366 (Version 1)
Quarter: 2016Q4

REPORT INFORMATION
  Report Type: Spontaneous
  Country: US (occurrence: US)
  Receive Date: 20161122
  Receipt Date: 20161122
  Transmission Date: 20170207
  Serious: No
  Sender: FDA-Public Use
  Company Number: US-PFIZER INC-2016540209

PATIENT
  Age: 62 Year
  Sex: Female

DRUGS (3)
  1. LISINOPRIL. [Concomitant]
     Active Substance: LISINOPRIL
     Indication: HYPERTENSION
     Dosage: 20 MG, UNK
  2. LORTAB [Suspect]
     Active Substance: ACETAMINOPHEN\HYDROCODONE BITARTRATE
  3. LYRICA [Suspect]
     Active Substance: PREGABALIN
     Dosage: 60 2X/DAY

REACTIONS (3)
  - Burning sensation [Unknown]
  - Restless legs syndrome [Unknown]
  - Somnolence [Unknown]
